FAERS Safety Report 6923982-2 (Version None)
Quarter: 2010Q3

REPORT INFORMATION
  Report Type: 
  Country: None (occurrence: None)
  Receive Date: 20100813
  Receipt Date: 20100805
  Transmission Date: 20110219
  Serious: Yes (Death, Hospitalization, Other)
  Sender: FDA-Public Use
  Company Number: US-ELI_LILLY_AND_COMPANY-US201005006611

PATIENT
  Sex: Male
  Weight: 69.388 kg

DRUGS (26)
  1. FORTEO [Suspect]
     Indication: OSTEOPOROSIS
     Dosage: 20 UG, DAILY (1/D)
     Dates: start: 20090101, end: 20100101
  2. FORTEO [Suspect]
     Dosage: 20 UG, DAILY (1/D)
     Dates: start: 20100101
  3. GABAPENTIN [Concomitant]
     Dosage: 100 MG, 4/D
  4. PROPRANOLOL [Concomitant]
     Dosage: 40 MG, 3/D
  5. PRIMIDONE [Concomitant]
     Dosage: 50 MG, 3/D
  6. MIRAPEX [Concomitant]
     Dosage: 0.5 MG, 2/D
  7. NEXIUM [Concomitant]
     Dosage: 40 MG, 2/D
  8. XANAX [Concomitant]
     Dosage: 1 MG, EACH EVENING
  9. XANAX [Concomitant]
     Dosage: 0.5 MG, 4/D
  10. LASIX [Concomitant]
     Dosage: 20 MG, 2/D
  11. ADVAIR DISKUS 100/50 [Concomitant]
     Dosage: 1 D/F, 2/D
  12. LORTAB [Concomitant]
     Indication: PAIN
     Dosage: UNK, AS NEEDED
  13. FLEXERIL [Concomitant]
     Dosage: 0.5 MG, 3/D
  14. COUMADIN [Concomitant]
     Dosage: 5 MG, 5/W
  15. COUMADIN [Concomitant]
     Dosage: 2.5 MG, 2/W
  16. CALCIUM [Concomitant]
     Dosage: 1000 U, DAILY (1/D)
  17. VITAMIN E [Concomitant]
     Dosage: UNK, DAILY (1/D)
  18. VITAMIN B6 [Concomitant]
     Dosage: UNK, DAILY (1/D)
  19. VITAMIN B-12 [Concomitant]
     Dosage: UNK, DAILY (1/D)
  20. OXYGEN [Concomitant]
     Dosage: UNK, AS NEEDED
  21. MYSOLINE [Concomitant]
  22. ALPRAZOLAM [Concomitant]
  23. NEURONTIN [Concomitant]
  24. FLOMAX [Concomitant]
  25. NORVASC [Concomitant]
  26. FUROSEMIDE [Concomitant]

REACTIONS (4)
  - DEATH [None]
  - HYPERCAPNIA [None]
  - RESPIRATORY FAILURE [None]
  - SYNCOPE [None]
